FAERS Safety Report 8461560-7 (Version None)
Quarter: 2012Q2

REPORT INFORMATION
  Report Type: 
  Country: None (occurrence: None)
  Receive Date: 20120625
  Receipt Date: 20120615
  Transmission Date: 20120825
  Serious: Yes (Hospitalization, Other)
  Sender: FDA-Public Use
  Company Number: PHHY2012AU045260

PATIENT
  Sex: Female

DRUGS (17)
  1. TIOTROPIUM [Concomitant]
     Dosage: 18 UG
  2. METFORMIN HCL [Concomitant]
     Dosage: 500 MG (ONE AT MORNING)
     Route: 048
  3. QUETIAPINE [Concomitant]
     Indication: SCHIZOPHRENIA
     Dosage: 50 MG (ONE AT MORNING)
     Route: 048
  4. FLUTICASONE [Concomitant]
     Dosage: 2 DF, BID
  5. PREDNISOLONE [Concomitant]
     Dosage: 12.5 MG DAILY
  6. LEVOTHYROXINE SODIUM [Concomitant]
     Indication: HYPOTHYROIDISM
     Dosage: 25 MCG (MON, WED, FRI)
     Route: 048
  7. ALBUTEROL [Concomitant]
     Dosage: 2 DF
  8. QUETIAPINE [Concomitant]
     Dosage: 100 MG (ONE AT NIGHT)
     Route: 048
  9. DOCUSATE [Concomitant]
     Indication: CONSTIPATION
     Route: 048
  10. DIAZEPAM [Concomitant]
     Dosage: 5-15 MG
     Route: 048
  11. CLOZARIL [Suspect]
     Indication: SCHIZOPHRENIA
     Dosage: 250 MG
     Route: 048
     Dates: start: 20050221
  12. LACTULOSE [Concomitant]
     Indication: CONSTIPATION
     Dosage: 20 ML, TID
  13. PREDNISOLONE [Concomitant]
     Route: 048
  14. AMOXICILLIN [Concomitant]
     Dosage: 100-500 MG
     Route: 048
  15. LEVOTHYROXINE SODIUM [Concomitant]
     Dosage: 50 MCG (TUES,THURS,SAT,SUN)
     Route: 048
  16. VENLAFAXINE HCL [Concomitant]
     Dosage: 150 MG (ONE AT MORNING0
     Route: 048
  17. SIMVASTATIN [Concomitant]
     Route: 048

REACTIONS (6)
  - RHINOVIRUS INFECTION [None]
  - PNEUMONIA [None]
  - WHITE BLOOD CELL COUNT INCREASED [None]
  - RESPIRATORY FAILURE [None]
  - CHRONIC OBSTRUCTIVE PULMONARY DISEASE [None]
  - NEUTROPHIL COUNT INCREASED [None]
